FAERS Safety Report 9771841 (Version 2)
Quarter: 2014Q1

REPORT INFORMATION
  Report Type: Spontaneous
  Country: FR (occurrence: None)
  Receive Date: 20130927
  Receipt Date: 20140108
  Transmission Date: 20141002
  Serious: Yes (Death, Other)
  Sender: FDA-Public Use
  Company Number: CAMP-1002860

PATIENT
  Sex: Male

DRUGS (1)
  1. ALEMTUZUMAB [Suspect]
     Indication: CHRONIC LYMPHOCYTIC LEUKAEMIA
     Dates: end: 20130130

REACTIONS (6)
  - Drug ineffective [None]
  - Respiratory distress [None]
  - Richter^s syndrome [None]
  - Generalised oedema [None]
  - Chronic lymphocytic leukaemia [None]
  - Malignant neoplasm progression [None]
